FAERS Safety Report 9254766 (Version 2)
Quarter: 2013Q2

REPORT INFORMATION
  Report Type: Spontaneous
  Country: US (occurrence: US)
  Receive Date: 20130425
  Receipt Date: 20130516
  Transmission Date: 20140414
  Serious: No
  Sender: FDA-Public Use
  Company Number: US-PFIZER INC-2013128390

PATIENT
  Age: 51 Year
  Sex: Female
  Weight: 111 kg

DRUGS (7)
  1. XELJANZ [Suspect]
     Dosage: 5 MG, 2X/DAY
     Route: 048
     Dates: start: 201303
  2. LEFLUNOMIDE [Concomitant]
     Dosage: 10 MG, UNK
  3. LISINOPRIL [Concomitant]
     Dosage: 2.5 MG, UNK
  4. PREDNISONE [Concomitant]
     Dosage: 1 MG, UNK
  5. CALCIUM [Concomitant]
     Dosage: 500 TAB, UNK
  6. CYCLOBENZAPRINE [Concomitant]
     Dosage: 5 MG, UNK
  7. OMEGA 3-6-9 [Concomitant]
     Dosage: UNK

REACTIONS (1)
  - Diarrhoea [Unknown]
